FAERS Safety Report 8363106-0 (Version None)
Quarter: 2012Q2

REPORT INFORMATION
  Report Type: 
  Country: None (occurrence: None)
  Receive Date: 20120514
  Receipt Date: 20120514
  Transmission Date: 20120825
  Serious: Yes (Other)
  Sender: FDA-Public Use
  Company Number: None

PATIENT
  Age: 47 Year
  Sex: Male
  Weight: 76.2043 kg

DRUGS (1)
  1. LEVAQUIN [Suspect]
     Indication: OSTEOMYELITIS
     Dosage: 1 1 PO
     Route: 048
     Dates: start: 20120215, end: 20120512

REACTIONS (1)
  - ARTHRALGIA [None]
